FAERS Safety Report 16302019 (Version 2)
Quarter: 2019Q2

REPORT INFORMATION
  Report Type: Report from Study
  Country: US (occurrence: US)
  Receive Date: 20190512
  Receipt Date: 20190527
  Transmission Date: 20190711
  Serious: Yes (Death, Hospitalization)
  Sender: FDA-Public Use
  Company Number: PHEH2019US020038

PATIENT
  Age: 55 Year
  Sex: Male
  Weight: 72.3 kg

DRUGS (1)
  1. AFINITOR [Suspect]
     Active Substance: EVEROLIMUS
     Indication: RENAL CANCER STAGE IV
     Dosage: 5 MG, UNK
     Route: 048
     Dates: start: 20190301, end: 20190412

REACTIONS (5)
  - Acute respiratory distress syndrome [Fatal]
  - Malignant neoplasm progression [Fatal]
  - Pneumonia aspiration [Fatal]
  - Acute respiratory failure [Fatal]
  - Renal cancer stage IV [Fatal]

NARRATIVE: CASE EVENT DATE: 20190417
